FAERS Safety Report 8245263-X (Version None)
Quarter: 2012Q1

REPORT INFORMATION
  Report Type: 
  Country: None (occurrence: None)
  Receive Date: 20120329
  Receipt Date: 20120315
  Transmission Date: 20120608
  Serious: Yes (Hospitalization)
  Sender: FDA-Public Use
  Company Number: AU-ROCHE-1051302

PATIENT
  Sex: Female
  Weight: 80 kg

DRUGS (18)
  1. ASPIRIN [Concomitant]
     Dates: start: 20100727
  2. LORAZEPAM [Concomitant]
     Dosage: 0,25 NR,1 EVERY 6 HOURS PRN
     Dates: start: 20110621
  3. ACTIVASE [Suspect]
     Indication: CEREBROVASCULAR ACCIDENT
     Dates: start: 20120201
  4. VITAMIN D [Concomitant]
     Dates: start: 20120120
  5. NATURAL TEARS [Concomitant]
     Dates: start: 20110519
  6. SPIRIVA [Concomitant]
     Dates: start: 20110623
  7. PROTOS [Concomitant]
     Dates: start: 20110107
  8. ACETAMINOPHEN [Concomitant]
     Dates: start: 20100325
  9. BRICANYL [Concomitant]
     Dates: start: 20110623
  10. SYMBICORT [Concomitant]
     Dates: start: 20110519
  11. NEXIUM [Concomitant]
     Dosage: 20 MG,1 MANE PRN
     Dates: start: 20110630
  12. HYDROCORTISONE [Concomitant]
     Dates: start: 20110519
  13. POTASSIUM CHLORIDE [Concomitant]
     Dates: start: 20110830
  14. BUPRENORPHINE [Concomitant]
     Dates: start: 20110519
  15. TRAMADOL HCL [Concomitant]
     Dosage: 50 MG,1 QD PRN
     Dates: start: 20110215
  16. SOFLAX (AUSTRALIA) [Concomitant]
     Dates: start: 20100604
  17. LASIX [Concomitant]
     Dates: start: 20110830
  18. CALCIUM CARBONATE [Concomitant]
     Dates: start: 20100107

REACTIONS (3)
  - HAEMATOMA [None]
  - DYSPNOEA [None]
  - SWELLING [None]
